FAERS Safety Report 9617707 (Version 3)
Quarter: 2013Q4

REPORT INFORMATION
  Report Type: Report from Study
  Country: GR (occurrence: GR)
  Receive Date: 20131011
  Receipt Date: 20131022
  Transmission Date: 20140711
  Serious: Yes (Death, Life-Threatening, Hospitalization)
  Sender: FDA-Public Use
  Company Number: GR-PFIZER INC-2013279324

PATIENT
  Age: 62 Year
  Sex: Male
  Weight: 78 kg

DRUGS (9)
  1. TEMSIROLIMUS [Suspect]
     Indication: PANCREATIC CARCINOMA METASTATIC
     Dosage: 25 MG, WEEKLY
     Route: 042
     Dates: start: 20130801, end: 20130828
  2. GEMZAR [Suspect]
     Indication: PANCREATIC CARCINOMA METASTATIC
     Dosage: 2000 MG (1000MG/M2), CYCLIC (EVERY TWO WEEKS)
     Route: 042
     Dates: start: 20130801, end: 20130905
  3. NORVASC [Concomitant]
     Indication: HYPERTENSION
     Dosage: 5 MG, 1X/DAY
     Route: 048
     Dates: end: 20130920
  4. ZOFRON [Concomitant]
     Indication: PREMEDICATION
     Dosage: 8 MG, EVERY THERAPY
     Route: 042
     Dates: start: 20130801, end: 20130905
  5. ZANTAC [Concomitant]
     Indication: PREMEDICATION
     Dosage: 50 MG, EVERY THERAPY
     Route: 042
     Dates: start: 20130801, end: 20130905
  6. FENISTIL [Concomitant]
     Indication: PREMEDICATION
     Dosage: 8 MG, EVERY THERAPY
     Route: 042
     Dates: start: 20130801, end: 20130905
  7. DEXAMETHASONE [Concomitant]
     Indication: PREMEDICATION
     Dosage: 4 MG, EVERY THERAPY
     Route: 042
     Dates: start: 20130801, end: 20130905
  8. SOTALOL [Concomitant]
     Indication: HYPERTENSION
     Dosage: 40 MG, 2X/DAY
     Route: 048
     Dates: end: 20131003
  9. SALOSPIR [Concomitant]
     Indication: HYPERTENSION
     Dosage: 100 MG, 1X/DAY
     Route: 048
     Dates: end: 20131003

REACTIONS (2)
  - Opportunistic infection [Fatal]
  - Muscle haemorrhage [Fatal]
